FAERS Safety Report 21475719 (Version 1)
Quarter: 2022Q4

REPORT INFORMATION
  Report Type: Spontaneous
  Country: US (occurrence: US)
  Receive Date: 20221019
  Receipt Date: 20221019
  Transmission Date: 20230113
  Serious: Yes (Death)
  Sender: FDA-Public Use
  Company Number: US-CHIESI-2022CHF05340

PATIENT
  Age: 96 Year
  Sex: Female
  Weight: 55.79 kg

DRUGS (3)
  1. TOBRAMYCIN [Suspect]
     Active Substance: TOBRAMYCIN
     Indication: Antibiotic therapy
     Dosage: 2.4 GRAM
     Route: 061
  2. TOBRAMYCIN [Suspect]
     Active Substance: TOBRAMYCIN
     Indication: Off label use
  3. VANCOMYCIN [Suspect]
     Active Substance: VANCOMYCIN
     Indication: Antibiotic therapy
     Dosage: 2 GRAM
     Route: 061

REACTIONS (6)
  - Acute kidney injury [Fatal]
  - Hypotension [Fatal]
  - Renal tubular necrosis [Fatal]
  - Antibiotic level above therapeutic [Fatal]
  - Off label use [Unknown]
  - Off label use [Unknown]
